FAERS Safety Report 17394108 (Version 2)
Quarter: 2020Q2

REPORT INFORMATION
  Report Type: Report from Study
  Country: US (occurrence: US)
  Receive Date: 20200210
  Receipt Date: 20200618
  Transmission Date: 20200713
  Serious: Yes (Disabling, Other)
  Sender: FDA-Public Use
  Company Number: US-ADVANZ PHARMA-202001000597

PATIENT

DRUGS (5)
  1. ALFUZOSIN [Suspect]
     Active Substance: ALFUZOSIN
     Indication: DYSURIA
  2. PRALUENT [Suspect]
     Active Substance: ALIROCUMAB
     Indication: ARTERIOSCLEROSIS
     Dosage: UNK, QOW
     Route: 065
     Dates: start: 2017
  3. ALFUZOSIN [Suspect]
     Active Substance: ALFUZOSIN
     Indication: PROSTATOMEGALY
     Dosage: UNK
     Route: 065
  4. PRALUENT [Suspect]
     Active Substance: ALIROCUMAB
     Indication: ARTERIOSCLEROSIS
     Dosage: UNK
     Route: 065
     Dates: start: 2017
  5. CELEXA [Suspect]
     Active Substance: CITALOPRAM HYDROBROMIDE
     Dosage: UNK
     Route: 065

REACTIONS (14)
  - Syncope [Unknown]
  - Dysuria [Unknown]
  - Condition aggravated [Unknown]
  - Abdominal discomfort [Unknown]
  - Diarrhoea [Unknown]
  - Injection site pain [Unknown]
  - Hypotension [Unknown]
  - Tardive dyskinesia [Unknown]
  - Tooth extraction [Unknown]
  - Wheelchair user [Unknown]
  - Vomiting [Unknown]
  - Aneurysm [Unknown]
  - Stress [Unknown]
  - Anxiety [Unknown]

NARRATIVE: CASE EVENT DATE: 201907
